FAERS Safety Report 7952021-X (Version None)
Quarter: 2011Q4

REPORT INFORMATION
  Report Type: 
  Country: None (occurrence: None)
  Receive Date: 20111201
  Receipt Date: 20111125
  Transmission Date: 20120403
  Serious: Yes (Other)
  Sender: FDA-Public Use
  Company Number: GB-GLAXOSMITHKLINE-B0765141A

PATIENT
  Age: 30 Year
  Sex: Male
  Weight: 119.5 kg

DRUGS (6)
  1. ORLISTAT [Suspect]
     Dosage: 360MG PER DAY
     Route: 048
     Dates: start: 20090605, end: 20090705
  2. ORLISTAT [Suspect]
     Dosage: 360MG PER DAY
     Route: 048
     Dates: start: 20100930, end: 20101124
  3. MAXIDEX [Concomitant]
     Dosage: 2IUAX PER DAY
     Route: 061
     Dates: start: 20100611
  4. COSOPT [Concomitant]
     Dosage: 2IUAX PER DAY
     Dates: start: 20110225
  5. ORLISTAT [Suspect]
     Indication: OBESITY
     Dosage: 360MG PER DAY
     Route: 048
     Dates: start: 20110914, end: 20111014
  6. FLUOXETINE [Concomitant]
     Route: 048
     Dates: start: 20110719

REACTIONS (6)
  - VISION BLURRED [None]
  - EYE PAIN [None]
  - INTRAOCULAR PRESSURE INCREASED [None]
  - EYE PRURITUS [None]
  - ASTHENOPIA [None]
  - HEADACHE [None]
